FAERS Safety Report 17039911 (Version 1)
Quarter: 2019Q4

REPORT INFORMATION
  Report Type: Report from Study
  Country: US (occurrence: US)
  Receive Date: 20191116
  Receipt Date: 20191116
  Transmission Date: 20200122
  Serious: Yes (Other)
  Sender: FDA-Public Use
  Company Number: US-ZYDUS-043164

PATIENT
  Age: 67 Year
  Sex: Female

DRUGS (1)
  1. TRANEXAMIC ACID. [Suspect]
     Active Substance: TRANEXAMIC ACID
     Indication: SPINAL FUSION SURGERY
     Route: 042

REACTIONS (1)
  - Atrial fibrillation [Recovered/Resolved]
